FAERS Safety Report 8885007 (Version 1)
Quarter: 2012Q4

REPORT INFORMATION
  Report Type: 
  Country: US (occurrence: US)
  Receive Date: 20121105
  Receipt Date: 20121105
  Transmission Date: 20130627
  Serious: Yes (Hospitalization)
  Sender: FDA-Public Use
  Company Number: US-BIOGENIDEC-2012BI049028

PATIENT
  Sex: Female

DRUGS (1)
  1. TYSABRI [Suspect]
     Indication: MULTIPLE SCLEROSIS
     Route: 042
     Dates: start: 20090708

REACTIONS (6)
  - Bronchitis [Unknown]
  - Bacterial infection [Unknown]
  - Contrast media reaction [Unknown]
  - Viral infection [Unknown]
  - Influenza [Unknown]
  - Pyrexia [Unknown]
